FAERS Safety Report 4878137-2 (Version None)
Quarter: 2005Q4

REPORT INFORMATION
  Report Type: 
  Country: None (occurrence: None)
  Receive Date: 20051209
  Receipt Date: 20050913
  Transmission Date: 20060501
  Serious: No
  Sender: FDA-Public Use
  Company Number: SUS1-2005-00679

PATIENT
  Age: 66 Year
  Sex: Female
  Weight: 104.3 kg

DRUGS (9)
  1. FOSRENOL [Suspect]
     Indication: HYPERPHOSPHATAEMIA
     Dosage: SEE IMAGE
     Dates: start: 20041001, end: 20041201
  2. FOSRENOL [Suspect]
     Indication: HYPERPHOSPHATAEMIA
     Dosage: SEE IMAGE
     Dates: start: 20050913
  3. ASPIRIN [Concomitant]
  4. QUININE SULFATE [Concomitant]
  5. LASIX [Concomitant]
  6. PLAVIX [Concomitant]
  7. SENSIPAR [Concomitant]
  8. RENAGEL [Concomitant]
  9. PHOSLO [Concomitant]

REACTIONS (2)
  - NAUSEA [None]
  - VOMITING [None]
